FAERS Safety Report 8519910 (Version 15)
Quarter: 2013Q4

REPORT INFORMATION
  Report Type: Spontaneous
  Country: US (occurrence: US)
  Receive Date: 20120418
  Receipt Date: 20131128
  Transmission Date: 20140711
  Serious: Yes (Hospitalization, Other)
  Sender: FDA-Public Use
  Company Number: US-ASTRAZENECA-2011SE32242

PATIENT
  Age: 31 Year
  Sex: Female
  Weight: 63.5 kg

DRUGS (23)
  1. NEXIUM [Suspect]
     Indication: GASTROOESOPHAGEAL REFLUX DISEASE
     Dosage: ONCE OR TWICE A DAY
     Route: 048
     Dates: start: 2005
  2. NEXIUM [Suspect]
     Indication: GASTROOESOPHAGEAL REFLUX DISEASE
     Dosage: TWICE A DAY
     Route: 048
     Dates: start: 2007
  3. NEXIUM [Suspect]
     Indication: GASTROOESOPHAGEAL REFLUX DISEASE
     Dosage: 40 MG 1TIME A DAY SOMETIMES 2 TIMES A DAY WHEN NEEDED
     Route: 048
     Dates: start: 2007
  4. NEXIUM [Suspect]
     Indication: GASTROOESOPHAGEAL REFLUX DISEASE
     Route: 048
     Dates: start: 20090227
  5. NEXIUM [Suspect]
     Indication: GASTROOESOPHAGEAL REFLUX DISEASE
     Route: 048
     Dates: start: 20101206
  6. NEXIUM [Suspect]
     Indication: GASTROOESOPHAGEAL REFLUX DISEASE
     Route: 048
     Dates: start: 20110322
  7. ZANTAC [Concomitant]
     Dates: start: 2005
  8. ZANTAC [Concomitant]
  9. MOTRIN [Concomitant]
     Dates: start: 20101203
  10. ULTRAM ER [Concomitant]
     Route: 048
     Dates: start: 20080821
  11. NUVARING [Concomitant]
     Route: 067
     Dates: start: 20090304
  12. AMOXICILLIN [Concomitant]
     Route: 048
     Dates: start: 20120315
  13. COLACE [Concomitant]
     Dates: start: 20091028
  14. BENTYL [Concomitant]
     Dates: start: 20091028
  15. AMITIZA [Concomitant]
     Dates: start: 20091028
  16. AMITIZA [Concomitant]
     Dates: start: 20110322
  17. KAPIDEX [Concomitant]
     Dates: start: 20091028
  18. PAXIL CR [Concomitant]
     Indication: GENERALISED ANXIETY DISORDER
     Route: 048
     Dates: start: 20030723
  19. LIBRAX [Concomitant]
     Dosage: 5 MG/2.5MG PRN
     Dates: start: 20030723
  20. PANTOPRAZOLE [Concomitant]
     Route: 048
     Dates: start: 20080821
  21. HYOSCYAMINE SUL [Concomitant]
     Route: 048
     Dates: start: 20080821
  22. PROMETHAZINE [Concomitant]
     Route: 048
     Dates: start: 20080821
  23. ZEGEND [Concomitant]

REACTIONS (9)
  - Wrist fracture [Unknown]
  - Radius fracture [Unknown]
  - Intestinal obstruction [Unknown]
  - Joint injury [Unknown]
  - Fall [Unknown]
  - Ulna fracture [Unknown]
  - Osteoporosis [Unknown]
  - Bone disorder [Unknown]
  - Fracture [Unknown]
